FAERS Safety Report 16692089 (Version 1)
Quarter: 2019Q4

REPORT INFORMATION
  Report Type: Spontaneous
  Country: None (occurrence: US)
  Receive Date: 20190810
  Receipt Date: 20190810
  Transmission Date: 20200122
  Serious: No
  Sender: FDA-Public Use
  Company Number: None

PATIENT
  Age: 52 Year
  Sex: Female

DRUGS (1)
  1. PARAGARD T 380A [Suspect]
     Active Substance: COPPER

REACTIONS (9)
  - Fatigue [None]
  - Oedema peripheral [None]
  - Device dislocation [None]
  - Inflammation [None]
  - Weight increased [None]
  - Depressed mood [None]
  - Vaginal haemorrhage [None]
  - Asthenia [None]
  - Polyp [None]

NARRATIVE: CASE EVENT DATE: 20190401
